FAERS Safety Report 8475381 (Version 3)
Quarter: 2014Q1

REPORT INFORMATION
  Report Type: Spontaneous
  Country: US (occurrence: US)
  Receive Date: 20120326
  Receipt Date: 20140319
  Transmission Date: 20141002
  Serious: No
  Sender: FDA-Public Use
  Company Number: US-PFIZER INC-2012074583

PATIENT
  Age: 45 Year
  Sex: Female

DRUGS (2)
  1. HALOPERIDOL [Suspect]
     Dosage: UNK
  2. NEURONTIN [Suspect]
     Dosage: UNK

REACTIONS (2)
  - Anxiety [Unknown]
  - Nervousness [Unknown]
